FAERS Safety Report 17726336 (Version 1)
Quarter: 2020Q2

REPORT INFORMATION
  Report Type: Spontaneous
  Country: US (occurrence: US)
  Receive Date: 20200430
  Receipt Date: 20200430
  Transmission Date: 20200714
  Serious: No
  Sender: FDA-Public Use
  Company Number: US-TEVA-2020-US-1226913

PATIENT
  Sex: Male

DRUGS (5)
  1. BETASERON [Concomitant]
     Active Substance: INTERFERON BETA-1B
  2. NIACIN. [Concomitant]
     Active Substance: NIACIN
  3. COPAXONE [Suspect]
     Active Substance: GLATIRAMER ACETATE
     Indication: MULTIPLE SCLEROSIS
     Dosage: 40 MILLIGRAM DAILY; COPAXONE 40MG THREE TIMES A WEEK
     Route: 058
     Dates: start: 20170622
  4. INDERAL [Concomitant]
     Active Substance: PROPRANOLOL HYDROCHLORIDE
  5. IRON [Concomitant]
     Active Substance: IRON

REACTIONS (4)
  - Muscle spasms [Not Recovered/Not Resolved]
  - Injection site pain [Not Recovered/Not Resolved]
  - Fatigue [Not Recovered/Not Resolved]
  - Skin sensitisation [Not Recovered/Not Resolved]
